FAERS Safety Report 10183998 (Version 1)
Quarter: 2014Q2

REPORT INFORMATION
  Report Type: Spontaneous
  Country: US (occurrence: US)
  Receive Date: 20140520
  Receipt Date: 20140520
  Transmission Date: 20141212
  Serious: Yes (Hospitalization)
  Sender: FDA-Public Use
  Company Number: US-GLAXOSMITHKLINE-A1073796A

PATIENT
  Age: 75 Year
  Sex: Male

DRUGS (4)
  1. ADVAIR HFA [Suspect]
     Indication: CHRONIC OBSTRUCTIVE PULMONARY DISEASE
     Dosage: 1PUFF TWICE PER DAY
     Route: 065
     Dates: start: 2012
  2. VENTOLIN [Suspect]
     Indication: DYSPNOEA
     Dosage: 1SPR FOUR TIMES PER DAY
     Route: 065
     Dates: start: 2012
  3. OXYGEN [Concomitant]
  4. MULTIPLE CONCURRENT [Concomitant]

REACTIONS (2)
  - Gallbladder disorder [Recovered/Resolved]
  - Pain [Recovered/Resolved]
